FAERS Safety Report 25594837 (Version 1)
Quarter: 2025Q3

REPORT INFORMATION
  Report Type: Spontaneous
  Country: US (occurrence: US)
  Receive Date: 20250723
  Receipt Date: 20250723
  Transmission Date: 20251021
  Serious: Yes (Life-Threatening, Hospitalization)
  Sender: DR REDDYS
  Company Number: None

PATIENT
  Age: 66 Year
  Sex: Male

DRUGS (1)
  1. AMIODARONE [Suspect]
     Active Substance: AMIODARONE
     Indication: Atrial fibrillation

REACTIONS (4)
  - Hyperthyroidism [Recovering/Resolving]
  - Cardiogenic shock [Recovering/Resolving]
  - Acute respiratory failure [Unknown]
  - Cardiac failure [Recovering/Resolving]
